FAERS Safety Report 6277777-6 (Version None)
Quarter: 2009Q3

REPORT INFORMATION
  Report Type: 
  Country: None (occurrence: None)
  Receive Date: 20090717
  Receipt Date: 20090717
  Transmission Date: 20100115
  Serious: No
  Sender: FDA-Public Use
  Company Number: None

PATIENT
  Sex: Female
  Weight: 70.3 kg

DRUGS (3)
  1. TAXOL [Suspect]
     Dosage: 144.8 MG
     Dates: end: 20080923
  2. LISINOPRIL [Concomitant]
  3. GLIPIZIDE [Concomitant]

REACTIONS (2)
  - DIASTOLIC DYSFUNCTION [None]
  - LEFT VENTRICULAR DYSFUNCTION [None]
